FAERS Safety Report 7583328-6 (Version None)
Quarter: 2011Q2

REPORT INFORMATION
  Report Type: 
  Country: None (occurrence: None)
  Receive Date: 20110627
  Receipt Date: 20110627
  Transmission Date: 20111010
  Serious: Yes (Other)
  Sender: FDA-Public Use
  Company Number: None

PATIENT
  Age: 49 Year
  Sex: Female

DRUGS (1)
  1. ADRIAMYCIN PFS [Suspect]
     Indication: HODGKIN'S DISEASE
     Dosage: 432MG  6 CYCLES

REACTIONS (2)
  - CARDIOTOXICITY [None]
  - EJECTION FRACTION DECREASED [None]
